FAERS Safety Report 21980905 (Version 1)
Quarter: 2023Q1

REPORT INFORMATION
  Report Type: Spontaneous
  Country: US (occurrence: None)
  Receive Date: 20230211
  Receipt Date: 20230211
  Transmission Date: 20230417
  Serious: No
  Sender: FDA-Public Use
  Company Number: 2023A026618

PATIENT
  Sex: Female

DRUGS (1)
  1. FARXIGA [Suspect]
     Active Substance: DAPAGLIFLOZIN PROPANEDIOL
     Indication: Type 2 diabetes mellitus
     Dosage: 5.0MG ONCE/SINGLE ADMINISTRATION
     Route: 048
     Dates: start: 20221121, end: 20221205

REACTIONS (1)
  - Vaginal haemorrhage [Recovered/Resolved]
